FAERS Safety Report 6138315-1 (Version None)
Quarter: 2009Q1

REPORT INFORMATION
  Report Type: 
  Country: None (occurrence: None)
  Receive Date: 20090331
  Receipt Date: 20090323
  Transmission Date: 20090719
  Serious: Yes (Life-Threatening, Hospitalization, Other)
  Sender: FDA-Public Use
  Company Number: DE-ABBOTT-09P-062-0564143-00

PATIENT
  Sex: Male

DRUGS (2)
  1. HUMIRA [Suspect]
     Indication: CROHN'S DISEASE
     Route: 058
  2. ACYCLOVIR [Concomitant]
     Indication: INFECTION PROPHYLAXIS

REACTIONS (6)
  - DEHYDRATION [None]
  - GASTRIC ULCER [None]
  - METASTASES TO LIVER [None]
  - ODYNOPHAGIA [None]
  - OESOPHAGITIS [None]
  - RECTOSIGMOID CANCER [None]
